FAERS Safety Report 7325497-9 (Version None)
Quarter: 2011Q1

REPORT INFORMATION
  Report Type: 
  Country: None (occurrence: None)
  Receive Date: 20110302
  Receipt Date: 20110226
  Transmission Date: 20110831
  Serious: Yes (Hospitalization)
  Sender: FDA-Public Use
  Company Number: JP-BRISTOL-MYERS SQUIBB COMPANY-15561715

PATIENT
  Age: 78 Year
  Sex: Female

DRUGS (5)
  1. CYCLOPHOSPHAMIDE [Suspect]
  2. HYDROXYDAUNORUBICIN [Suspect]
  3. RITUXIMAB [Suspect]
  4. PREDNISOLONE [Suspect]
  5. VINCRISTINE [Suspect]

REACTIONS (1)
  - ILEAL STENOSIS [None]
